FAERS Safety Report 12657689 (Version 2)
Quarter: 2016Q4

REPORT INFORMATION
  Report Type: Report from Study
  Country: US (occurrence: US)
  Receive Date: 20160816
  Receipt Date: 20161028
  Transmission Date: 20170207
  Serious: Yes (Other)
  Sender: FDA-Public Use
  Company Number: US-CORCEPT THERAPEUTICS INC.-US-2016CRT000423

PATIENT

DRUGS (2)
  1. KORLYM [Suspect]
     Active Substance: MIFEPRISTONE
     Dosage: 300 MG 3 WEEKS ON AND 1 WEEK OFF
     Dates: start: 2016
  2. KORLYM [Suspect]
     Active Substance: MIFEPRISTONE
     Indication: NEOPLASM
     Dosage: 300 MG, UNK
     Dates: start: 20160213, end: 2016

REACTIONS (1)
  - Brain neoplasm [Unknown]

NARRATIVE: CASE EVENT DATE: 2016
